FAERS Safety Report 8232570-X (Version None)
Quarter: 2012Q1

REPORT INFORMATION
  Report Type: 
  Country: None (occurrence: None)
  Receive Date: 20120323
  Receipt Date: 20120313
  Transmission Date: 20120608
  Serious: Yes (Hospitalization)
  Sender: FDA-Public Use
  Company Number: JP-ABBOTT-12P-087-0898305-00

PATIENT
  Sex: Female
  Weight: 59 kg

DRUGS (12)
  1. FOLIC ACID [Concomitant]
     Indication: ADVERSE EVENT
  2. METHOTREXATE [Concomitant]
     Dates: start: 20120217
  3. FOLIC ACID [Concomitant]
     Indication: PROPHYLAXIS
     Route: 048
     Dates: start: 20100922, end: 20111208
  4. FAMOTIDINE [Concomitant]
     Indication: PROPHYLAXIS
     Route: 048
     Dates: start: 20100331
  5. HUMIRA [Suspect]
     Indication: RHEUMATOID ARTHRITIS
     Route: 058
     Dates: start: 20100319, end: 20111124
  6. PREDNISOLONE [Concomitant]
     Indication: RHEUMATOID ARTHRITIS
     Route: 048
     Dates: start: 20020501, end: 20111228
  7. PREDNISOLONE [Concomitant]
     Dates: start: 20111228, end: 20120110
  8. METHOTREXATE [Concomitant]
     Indication: RHEUMATOID ARTHRITIS
     Route: 048
     Dates: start: 20020501, end: 20111208
  9. PREDNISOLONE [Concomitant]
     Dates: start: 20120110, end: 20120215
  10. PREDNISOLONE [Concomitant]
     Dates: start: 20120215
  11. FAMOTIDINE [Concomitant]
     Indication: ADVERSE EVENT
  12. RHEUMATREX [Suspect]
     Indication: RHEUMATOID ARTHRITIS
     Route: 048
     Dates: start: 20020501, end: 20111208

REACTIONS (4)
  - DERMATOMYOSITIS [None]
  - COLLAGEN DISORDER [None]
  - WHITE BLOOD CELL COUNT DECREASED [None]
  - SYSTEMIC LUPUS ERYTHEMATOSUS [None]
